FAERS Safety Report 18261593 (Version 1)
Quarter: 2020Q3

REPORT INFORMATION
  Report Type: Spontaneous
  Country: US (occurrence: US)
  Receive Date: 20200911
  Receipt Date: 20200911
  Transmission Date: 20201103
  Serious: No
  Sender: FDA-Public Use
  Company Number: None

PATIENT
  Age: 73 Year
  Sex: Male
  Weight: 90.27 kg

DRUGS (9)
  1. LOSARTAN 50MG [Concomitant]
     Active Substance: LOSARTAN
  2. METFORMIN [Concomitant]
     Active Substance: METFORMIN HYDROCHLORIDE
  3. AMLODIPINE [Concomitant]
     Active Substance: AMLODIPINE BESYLATE
  4. VITAMIN C ER 500MG [Concomitant]
  5. VITAMIN D3 125MCG [Concomitant]
  6. CAPECITABINE. [Suspect]
     Active Substance: CAPECITABINE
     Indication: CARCINOID SYNDROME
     Route: 048
     Dates: start: 20200324
  7. THERAGRAN?M 100MG [Concomitant]
  8. XGEVA [Concomitant]
     Active Substance: DENOSUMAB
  9. SOMATULINE DEPOT 120MG/0.5ML [Concomitant]

REACTIONS (3)
  - Erythema [None]
  - Skin disorder [None]
  - Skin exfoliation [None]

NARRATIVE: CASE EVENT DATE: 20200911
